FAERS Safety Report 23465018 (Version 2)
Quarter: 2024Q1

REPORT INFORMATION
  Report Type: Other
  Country: US (occurrence: None)
  Receive Date: 20240201
  Receipt Date: 20240206
  Transmission Date: 20240410
  Serious: Yes (Hospitalization, Other)
  Sender: FDA-Public Use
  Company Number: US-ROCHE-3501156

PATIENT
  Age: 70 Year
  Sex: Female
  Weight: 81.72 kg

DRUGS (15)
  1. XOLAIR [Suspect]
     Active Substance: OMALIZUMAB
     Indication: Asthma
     Dosage: EACH PRE-FILLED SYRINGE IS 150MG AND RECEIVES TWO AT EACH ADMINISTRATION TIME. ;ONGOING: YES
     Route: 058
     Dates: start: 2014
  2. XOLAIR [Suspect]
     Active Substance: OMALIZUMAB
  3. XOLAIR [Suspect]
     Active Substance: OMALIZUMAB
     Indication: Hypersensitivity
  4. XOLAIR [Suspect]
     Active Substance: OMALIZUMAB
  5. FLUTICASONE [Concomitant]
     Active Substance: FLUTICASONE
  6. ALBUTEROL [Concomitant]
     Active Substance: ALBUTEROL
  7. MONTELUKAST [Concomitant]
     Active Substance: MONTELUKAST SODIUM
  8. AMLODIPINE [Concomitant]
     Active Substance: AMLODIPINE BESYLATE
  9. PANTOPRAZOLE [Concomitant]
     Active Substance: PANTOPRAZOLE
  10. EPINEPHRINE [Concomitant]
     Active Substance: EPINEPHRINE
  11. FLUOXETINE [Concomitant]
     Active Substance: FLUOXETINE HYDROCHLORIDE
  12. CLONAZEPAM [Concomitant]
     Active Substance: CLONAZEPAM
  13. AZITHROMYCIN [Concomitant]
     Active Substance: AZITHROMYCIN
  14. PREDNISONE [Concomitant]
     Active Substance: PREDNISONE
  15. ACETAMINOPHEN [Concomitant]
     Active Substance: ACETAMINOPHEN

REACTIONS (11)
  - Abdominal pain upper [Not Recovered/Not Resolved]
  - Anaphylactic shock [Recovered/Resolved]
  - Amnesia [Not Recovered/Not Resolved]
  - Oedema [Recovered/Resolved]
  - Loss of consciousness [Unknown]
  - Hallucination [Unknown]
  - Coma [Unknown]
  - Pain [Unknown]
  - Fatigue [Unknown]
  - Dysphonia [Unknown]
  - Speech disorder [Unknown]

NARRATIVE: CASE EVENT DATE: 20230809
